FAERS Safety Report 14282374 (Version 1)
Quarter: 2017Q4

REPORT INFORMATION
  Report Type: Spontaneous
  Country: US (occurrence: US)
  Receive Date: 20171213
  Receipt Date: 20171213
  Transmission Date: 20180321
  Serious: No
  Sender: FDA-Public Use
  Company Number: US-ALLERGAN-1764533US

PATIENT
  Age: 57 Year
  Sex: Female

DRUGS (1)
  1. ACZONE [Suspect]
     Active Substance: DAPSONE
     Indication: ROSACEA
     Dosage: IN THE MORNINGS
     Route: 061
     Dates: start: 20171030, end: 20171101

REACTIONS (8)
  - Wheezing [Recovered/Resolved]
  - Product formulation issue [Unknown]
  - Eye discharge [Recovered/Resolved]
  - Eye swelling [Recovered/Resolved]
  - Influenza like illness [Recovered/Resolved]
  - Swelling face [Recovered/Resolved]
  - Off label use [Unknown]
  - Lip swelling [Recovered/Resolved]

NARRATIVE: CASE EVENT DATE: 20171030
